FAERS Safety Report 11881654 (Version 1)
Quarter: 2015Q4

REPORT INFORMATION
  Report Type: Spontaneous
  Country: US (occurrence: US)
  Receive Date: 20151231
  Receipt Date: 20151231
  Transmission Date: 20160305
  Serious: No
  Sender: FDA-Public Use
  Company Number: US-PFIZER INC-2015436155

PATIENT
  Age: 57 Year
  Sex: Female
  Weight: 73 kg

DRUGS (14)
  1. VITAMIN D /00107901/ [Concomitant]
     Active Substance: ERGOCALCIFEROL
     Indication: HYPOVITAMINOSIS
     Dosage: 4000 IU, 1X/DAY
     Dates: start: 201509
  2. LITHIUM. [Concomitant]
     Active Substance: LITHIUM
     Indication: BIPOLAR DISORDER
     Dosage: 300 MG, 2X/DAY
     Route: 048
     Dates: start: 2004
  3. ROPINIROLE. [Concomitant]
     Active Substance: ROPINIROLE
     Indication: RESTLESS LEGS SYNDROME
     Dosage: 40 MG, 2X/DAY; TWO 20MG PILLS TWICE A DAY
     Route: 048
     Dates: start: 201508
  4. LEXAPRO [Concomitant]
     Active Substance: ESCITALOPRAM OXALATE
     Indication: MAJOR DEPRESSION
     Dosage: 20 MG, 1X/DAY
  5. VOLTAREN [Concomitant]
     Active Substance: DICLOFENAC SODIUM
     Indication: NEURALGIA
     Dosage: TOPICAL UP TO 4 TIMES A DAY ON ARMS
     Dates: start: 2012
  6. MAGNESIUM [Concomitant]
     Active Substance: MAGNESIUM
     Indication: SUPPLEMENTATION THERAPY
     Dosage: 250 MG, 1X/DAY
     Route: 048
     Dates: start: 201509
  7. WELLBUTRIN [Concomitant]
     Active Substance: BUPROPION HYDROCHLORIDE
     Indication: MAJOR DEPRESSION
     Dosage: 150 MG, 1X/DAY
     Route: 048
     Dates: start: 201506
  8. ADVAIR HFA [Concomitant]
     Active Substance: FLUTICASONE PROPIONATE\SALMETEROL XINAFOATE
     Indication: ASTHMA
     Dosage: 500/250 INHALER ONE PUFF TWICE A DAY
     Dates: start: 2004
  9. CALCIUM CITRATE [Concomitant]
     Active Substance: CALCIUM CITRATE
     Indication: SUPPLEMENTATION THERAPY
     Dosage: 1000 MG, 1X/DAY
     Route: 048
     Dates: start: 201509
  10. VITAMIN B12 [Concomitant]
     Active Substance: CYANOCOBALAMIN
     Indication: HYPOVITAMINOSIS
     Dosage: 1000 MG, 1X/DAY
     Route: 048
     Dates: start: 201509
  11. RESTASIS [Concomitant]
     Active Substance: CYCLOSPORINE
     Indication: DRY EYE
     Dosage: 2 GTT, 2X/DAY
     Dates: start: 2013
  12. GABAPENTIN. [Concomitant]
     Active Substance: GABAPENTIN
  13. LEVOTHYROXINE SODIUM. [Suspect]
     Active Substance: LEVOTHYROXINE SODIUM
     Indication: AUTOIMMUNE THYROIDITIS
     Dosage: 0.088 UG, 1X/DAY
  14. LEVOTHYROXINE SODIUM. [Suspect]
     Active Substance: LEVOTHYROXINE SODIUM
     Dosage: 0.075 UG, UNK
     Dates: start: 201509

REACTIONS (2)
  - Amnesia [Unknown]
  - Weight increased [Unknown]

NARRATIVE: CASE EVENT DATE: 201509
